FAERS Safety Report 23738706 (Version 1)
Quarter: 2024Q2

REPORT INFORMATION
  Report Type: Report from Study
  Country: PT (occurrence: PT)
  Receive Date: 20240412
  Receipt Date: 20240412
  Transmission Date: 20240716
  Serious: Yes (Other)
  Sender: FDA-Public Use
  Company Number: PT-ABBVIE-5713512

PATIENT
  Age: 71 Year
  Sex: Female

DRUGS (2)
  1. CARBIDOPA\LEVODOPA [Suspect]
     Active Substance: CARBIDOPA\LEVODOPA
     Indication: Parkinson^s disease
     Dosage: 20 MG + 5 MG, MORN:3CC; MAINT:0.9CC/H; EXTR:0.5CC
     Route: 050
     Dates: start: 2024, end: 2024
  2. CARBIDOPA\LEVODOPA [Suspect]
     Active Substance: CARBIDOPA\LEVODOPA
     Dosage: 20 MG + 5 MG (VIA NJ), MORN:5.8CC; MAINT:1.7CC/H; EXTR:0.5CC,
     Route: 050
     Dates: start: 20240221

REACTIONS (2)
  - Device occlusion [Recovered/Resolved]
  - Bladder catheterisation [Unknown]

NARRATIVE: CASE EVENT DATE: 20240401
